FAERS Safety Report 16490393 (Version 1)
Quarter: 2019Q2

REPORT INFORMATION
  Report Type: Report from Study
  Country: None (occurrence: US)
  Receive Date: 20190628
  Receipt Date: 20190628
  Transmission Date: 20190711
  Serious: Yes (Other)
  Sender: FDA-Public Use
  Company Number: US-ABBVIE-19K-163-2833428-00

PATIENT
  Age: 51 Year
  Sex: Female

DRUGS (2)
  1. HUMIRA [Suspect]
     Active Substance: ADALIMUMAB
     Indication: RHEUMATOID ARTHRITIS
     Dosage: CITRATE FREE
     Route: 058
     Dates: start: 20190510, end: 2019
  2. HUMIRA [Suspect]
     Active Substance: ADALIMUMAB
     Dosage: CF PEN
     Route: 058
     Dates: start: 2019

REACTIONS (6)
  - Limb injury [Unknown]
  - Suicidal ideation [Unknown]
  - Back pain [Unknown]
  - Depression [Unknown]
  - Injection site pain [Unknown]
  - Fall [Unknown]

NARRATIVE: CASE EVENT DATE: 201906
